FAERS Safety Report 12354015 (Version 4)
Quarter: 2017Q4

REPORT INFORMATION
  Report Type: Spontaneous
  Country: KR (occurrence: KR)
  Receive Date: 20160511
  Receipt Date: 20171116
  Transmission Date: 20180320
  Serious: Yes (Other)
  Sender: FDA-Public Use
  Company Number: KR-SUN PHARMACEUTICAL INDUSTRIES LTD-2016RR-116230

PATIENT
  Sex: Female

DRUGS (4)
  1. MELPHALAN. [Suspect]
     Active Substance: MELPHALAN
     Indication: OSTEOSARCOMA
     Dosage: 70 MG/M2 ON DAY -6
     Route: 065
  2. MELPHALAN. [Suspect]
     Active Substance: MELPHALAN
     Indication: OSTEOSARCOMA
     Dosage: 140 MG/M2 ON DAY -7
     Route: 065
  3. ETOPOSIDE. [Suspect]
     Active Substance: ETOPOSIDE
     Indication: OSTEOSARCOMA
     Dosage: 200 MG/M2 FROM DAY -8 TO -5
     Route: 065
  4. CARBOPLATIN. [Suspect]
     Active Substance: CARBOPLATIN
     Indication: OSTEOSARCOMA
     Dosage: 400 MG/M2 FROM DAY -8 TO -5
     Route: 065

REACTIONS (1)
  - Venoocclusive liver disease [Recovered/Resolved]

NARRATIVE: CASE EVENT DATE: 20110701
